FAERS Safety Report 9181202 (Version 2)
Quarter: 2013Q2

REPORT INFORMATION
  Report Type: Spontaneous
  Country: US (occurrence: US)
  Receive Date: 20130322
  Receipt Date: 20130509
  Transmission Date: 20140414
  Serious: No
  Sender: FDA-Public Use
  Company Number: US-PFIZER INC-2013090897

PATIENT
  Age: 74 Year
  Sex: Male
  Weight: 136 kg

DRUGS (11)
  1. PROTONIX [Suspect]
     Dosage: 40 MG, 1X/DAY
     Route: 048
     Dates: start: 201112
  2. PANTOPRAZOLE [Suspect]
     Dosage: UNK
  3. KEPPRA [Concomitant]
     Indication: TREMOR
     Dosage: 50 MG, UNK
  4. KEPPRA [Concomitant]
     Indication: PARKINSON^S DISEASE
  5. MYSOLINE [Concomitant]
     Indication: TREMOR
     Dosage: 250 MG, 2X/DAY
  6. MYSOLINE [Concomitant]
     Indication: PARKINSON^S DISEASE
  7. LIPITOR [Concomitant]
     Indication: BLOOD CHOLESTEROL INCREASED
     Dosage: 20 MG, 1X/DAY
  8. PROZAC [Concomitant]
     Dosage: 20 MG, 1X/DAY
  9. CARDURA [Concomitant]
     Indication: HYPERTENSION
     Dosage: 2 MG, 1X/DAY
  10. PLAVIX [Concomitant]
     Indication: ANTICOAGULANT THERAPY
     Dosage: 75 MG, 1X/DAY
  11. FLOMAX [Concomitant]
     Dosage: 0.4 MG, UNK

REACTIONS (2)
  - Pain in extremity [Not Recovered/Not Resolved]
  - Arthralgia [Not Recovered/Not Resolved]
